FAERS Safety Report 8533575-1 (Version None)
Quarter: 2012Q3

REPORT INFORMATION
  Report Type: 
  Country: None (occurrence: None)
  Receive Date: 20120724
  Receipt Date: 20120718
  Transmission Date: 20120928
  Serious: Yes (Other)
  Sender: FDA-Public Use
  Company Number: CH-BAYER-2012-071439

PATIENT
  Age: 44 Year
  Sex: Male

DRUGS (1)
  1. ASPIRIN [Suspect]
     Indication: HEADACHE
     Dosage: 500 MG, ONCE
     Dates: start: 20120317, end: 20120317

REACTIONS (2)
  - ANGIOEDEMA [None]
  - LIP SWELLING [None]
